FAERS Safety Report 4285532-1 (Version None)
Quarter: 2004Q1

REPORT INFORMATION
  Report Type: 
  Country: None (occurrence: None)
  Receive Date: 20040203
  Receipt Date: 20040122
  Transmission Date: 20041129
  Serious: Yes (Hospitalization)
  Sender: FDA-Public Use
  Company Number: US-JNJFOC-20040104671

PATIENT
  Age: 32 Year
  Sex: Female
  Weight: 88.4514 kg

DRUGS (4)
  1. REMICADE [Suspect]
     Indication: RHEUMATOID ARTHRITIS
     Dosage: INTRAVENOUS
     Route: 042
     Dates: start: 20040119, end: 20040119
  2. METHOTREXATE SODIUM [Concomitant]
  3. MOTRIN [Concomitant]
  4. EFFEXOR [Concomitant]

REACTIONS (2)
  - HEADACHE [None]
  - HYPERCAPNIA [None]
